FAERS Safety Report 7048323-4 (Version None)
Quarter: 2010Q4

REPORT INFORMATION
  Report Type: 
  Country: None (occurrence: None)
  Receive Date: 20101015
  Receipt Date: 20101007
  Transmission Date: 20110411
  Serious: No
  Sender: FDA-Public Use
  Company Number: US-US-EMD SERONO, INC.-7018705

PATIENT
  Sex: Female
  Weight: 85 kg

DRUGS (10)
  1. REBIF [Suspect]
     Indication: MULTIPLE SCLEROSIS
     Route: 058
     Dates: start: 20100831
  2. ATIVAN [Concomitant]
     Indication: INSOMNIA
  3. ALBUTEROL [Concomitant]
     Indication: ASTHMA
  4. ALBUTEROL [Concomitant]
     Indication: ASTHMA
     Route: 048
  5. BENADRYL [Concomitant]
  6. ASPIRIN [Concomitant]
  7. EXCEDRIN (MIGRAINE) [Concomitant]
  8. TYLENOL [Concomitant]
  9. NEURONTIN [Concomitant]
     Indication: PAIN
  10. LORCET-HD [Concomitant]
     Indication: PAIN

REACTIONS (5)
  - FACIAL PARESIS [None]
  - HYPOACUSIS [None]
  - INFLUENZA LIKE ILLNESS [None]
  - MULTIPLE SCLEROSIS RELAPSE [None]
  - PROCEDURAL PAIN [None]
